FAERS Safety Report 11462248 (Version 1)
Quarter: 2015Q3

REPORT INFORMATION
  Report Type: Spontaneous
  Country: US (occurrence: US)
  Receive Date: 20150831
  Receipt Date: 20150831
  Transmission Date: 20151125
  Serious: No
  Sender: FDA-Public Use
  Company Number: US-ELI_LILLY_AND_COMPANY-US201007007163

PATIENT
  Sex: Female

DRUGS (8)
  1. FLONASE [Concomitant]
     Active Substance: FLUTICASONE PROPIONATE
  2. ESTRACE [Concomitant]
     Active Substance: ESTRADIOL
  3. CYMBALTA [Suspect]
     Active Substance: DULOXETINE HYDROCHLORIDE
     Dosage: 60 MG, DAILY (1/D)
  4. ENABLEX                            /01760402/ [Concomitant]
  5. QVAR [Concomitant]
     Active Substance: BECLOMETHASONE DIPROPIONATE
  6. CLOBETASOL [Concomitant]
     Active Substance: CLOBETASOL
  7. CYMBALTA [Suspect]
     Active Substance: DULOXETINE HYDROCHLORIDE
     Indication: VULVOVAGINAL PAIN
     Dosage: 30 MG, UNK
     Dates: start: 20100723
  8. PROPIONATE [Concomitant]

REACTIONS (4)
  - Off label use [Not Recovered/Not Resolved]
  - Dizziness [Unknown]
  - Irritability [Unknown]
  - Pain [Unknown]
